FAERS Safety Report 12907606 (Version 2)
Quarter: 2016Q4

REPORT INFORMATION
  Report Type: Spontaneous
  Country: BR (occurrence: BR)
  Receive Date: 20161103
  Receipt Date: 20161109
  Transmission Date: 20170207
  Serious: Yes (Other)
  Sender: FDA-Public Use
  Company Number: BR-BAYER-2016-204714

PATIENT
  Age: 32 Year
  Sex: Female

DRUGS (2)
  1. QLAIRA [Suspect]
     Active Substance: DIENOGEST\ESTRADIOL VALERATE
     Indication: CONTRACEPTION
     Dosage: UNK
     Route: 048
     Dates: start: 2012, end: 20160818
  2. OMEPRAZOLE. [Concomitant]
     Active Substance: OMEPRAZOLE
     Indication: GASTRIC DISORDER
     Dosage: 1 DF, BID
     Route: 048
     Dates: start: 1999

REACTIONS (3)
  - Pregnancy on oral contraceptive [Not Recovered/Not Resolved]
  - Subchorionic haemorrhage [None]
  - Drug ineffective [None]

NARRATIVE: CASE EVENT DATE: 201607
